FAERS Safety Report 8227076-8 (Version None)
Quarter: 2012Q1

REPORT INFORMATION
  Report Type: 
  Country: None (occurrence: None)
  Receive Date: 20120322
  Receipt Date: 20120319
  Transmission Date: 20120608
  Serious: No
  Sender: FDA-Public Use
  Company Number: US-PFIZER INC-2012072381

PATIENT
  Sex: Female
  Weight: 99.8 kg

DRUGS (5)
  1. FLAXSEED OIL [Concomitant]
     Dosage: UNKNOWN DOSE TWO TIMES A DAY
  2. CALCIUM [Concomitant]
     Dosage: UNKNOWN DOSE ONCE A DAY
  3. VITAMIN B COMPLEX CAP [Concomitant]
     Dosage: UNKNOWN DOSE ONCE A DAY
  4. VITRON-C [Concomitant]
     Indication: MINERAL SUPPLEMENTATION
     Dosage: UNK
  5. LYRICA [Suspect]
     Indication: NEUROPATHY PERIPHERAL
     Dosage: 50 MG, 2X/DAY
     Dates: end: 20120311

REACTIONS (3)
  - PAIN IN EXTREMITY [None]
  - PARAESTHESIA [None]
  - DIZZINESS [None]
